FAERS Safety Report 8311734 (Version 5)
Quarter: 2013Q1

REPORT INFORMATION
  Report Type: Spontaneous
  Country: JP (occurrence: JP)
  Receive Date: 20111227
  Receipt Date: 20130122
  Transmission Date: 20140127
  Serious: Yes (Death, Hospitalization, Other)
  Sender: FDA-Public Use
  Company Number: JP-UCBSA-047993

PATIENT
  Age: 81 Year
  Sex: Female

DRUGS (7)
  1. XYZAL [Suspect]
     Indication: ERYTHEMA
     Route: 048
     Dates: start: 20111110, end: 20111113
  2. ATARAX-P [Suspect]
     Indication: ERYTHEMA
     Route: 048
     Dates: start: 20111121, end: 20111127
  3. CELESTAMINE [Suspect]
     Indication: ERYTHEMA
     Route: 048
     Dates: start: 20111114, end: 20111120
  4. ALLELOCK OD [Suspect]
     Indication: ERYTHEMA
     Route: 048
     Dates: start: 20111128, end: 20111129
  5. TAKEPRON [Concomitant]
     Dates: end: 20111129
  6. GASTROM [Concomitant]
     Route: 048
     Dates: end: 20111129
  7. BEZALIP [Concomitant]
     Route: 048

REACTIONS (35)
  - Hepatic failure [Fatal]
  - Liver disorder [Recovering/Resolving]
  - Drug-induced liver injury [Recovering/Resolving]
  - Prothrombin time prolonged [Unknown]
  - Prothrombin time ratio decreased [Unknown]
  - Activated partial thromboplastin time prolonged [Unknown]
  - Protein total decreased [Unknown]
  - Blood albumin decreased [Unknown]
  - Blood lactate dehydrogenase increased [Unknown]
  - Blood alkaline phosphatase increased [Unknown]
  - Gamma-glutamyltransferase increased [Unknown]
  - Epstein-Barr virus antibody positive [Unknown]
  - Blood immunoglobulin G increased [Unknown]
  - Hepatic encephalopathy [Unknown]
  - Somnolence [Unknown]
  - General physical health deterioration [Unknown]
  - Ascites [Recovering/Resolving]
  - Oliguria [Unknown]
  - Oedema peripheral [Recovering/Resolving]
  - Hepatic atrophy [Unknown]
  - Blood immunoglobulin A increased [Unknown]
  - Albumin globulin ratio abnormal [Unknown]
  - Blood cholinesterase decreased [Unknown]
  - Blood fibrinogen decreased [Unknown]
  - Dermatitis [Unknown]
  - Autoimmune hepatitis [Unknown]
  - Jaundice [Not Recovered/Not Resolved]
  - Blood bilirubin increased [Unknown]
  - Bilirubin conjugated increased [Unknown]
  - Aspartate aminotransferase increased [Unknown]
  - Alanine aminotransferase increased [Unknown]
  - Faeces pale [Unknown]
  - Malaise [Unknown]
  - Chromaturia [Unknown]
  - Decreased appetite [Unknown]
